FAERS Safety Report 21258404 (Version 1)
Quarter: 2022Q3

REPORT INFORMATION
  Report Type: Spontaneous
  Country: US (occurrence: US)
  Receive Date: 20220826
  Receipt Date: 20220826
  Transmission Date: 20221027
  Serious: Yes (Other)
  Sender: FDA-Public Use
  Company Number: US-NOVARTISPH-NVSC2022US190703

PATIENT
  Age: 74 Year
  Sex: Female

DRUGS (1)
  1. VALACYCLOVIR HYDROCHLORIDE [Suspect]
     Active Substance: VALACYCLOVIR HYDROCHLORIDE
     Indication: Herpes zoster
     Dosage: 1 G, TID (A SUPRATHERAPEUTIC DOSE GIVEN HER CRCL OF 6 ML/MIN))
     Route: 065

REACTIONS (1)
  - Neurotoxicity [Recovering/Resolving]
